FAERS Safety Report 24737349 (Version 1)
Quarter: 2024Q4

REPORT INFORMATION
  Report Type: Spontaneous
  Country: US (occurrence: None)
  Receive Date: 20241213
  Receipt Date: 20241213
  Transmission Date: 20250115
  Serious: Yes (Hospitalization)
  Sender: Public
  Company Number: None

PATIENT
  Age: 88 Year
  Sex: Male
  Weight: 91 kg

DRUGS (4)
  1. SODIUM CHLORIDE [Suspect]
     Active Substance: SODIUM CHLORIDE
     Indication: Wound
  2. DEVICE [Suspect]
     Active Substance: DEVICE
  3. DOXYCYCLINE [Suspect]
     Active Substance: DOXYCYCLINE
  4. AUGMENTIN [Suspect]
     Active Substance: AMOXICILLIN\CLAVULANATE POTASSIUM

REACTIONS (4)
  - Limb injury [None]
  - Rash [None]
  - Blister [None]
  - Application site hypersensitivity [None]

NARRATIVE: CASE EVENT DATE: 20241119
